FAERS Safety Report 25878897 (Version 1)
Quarter: 2025Q4

REPORT INFORMATION
  Report Type: Spontaneous
  Country: EU (occurrence: EU)
  Receive Date: 20251003
  Receipt Date: 20251003
  Transmission Date: 20260118
  Serious: Yes (Hospitalization, Other)
  Sender: INSUD PHARMA
  Company Number: EU-INSUD PHARMA-2509DE08055

PATIENT

DRUGS (2)
  1. OMEPRAZOLE [Suspect]
     Active Substance: OMEPRAZOLE
     Indication: Gastrooesophageal reflux disease
     Dosage: LONG-TERM, HIGH-DOSE, DAILY
     Route: 065
  2. OMEPRAZOLE [Suspect]
     Active Substance: OMEPRAZOLE
     Dosage: RENEWED PRESCRIPTION OF OMEPRAZOLE

REACTIONS (13)
  - Cerebellar syndrome [Recovering/Resolving]
  - Magnesium deficiency [Recovering/Resolving]
  - Hypokalaemia [Recovered/Resolved]
  - Gait disturbance [Recovering/Resolving]
  - Vertigo [Recovered/Resolved]
  - Coordination abnormal [Recovering/Resolving]
  - Nausea [Recovered/Resolved]
  - Vomiting [Recovered/Resolved]
  - Diarrhoea [Recovered/Resolved]
  - Abnormal loss of weight [Recovered/Resolved]
  - Nystagmus [Recovered/Resolved]
  - Intention tremor [Recovered/Resolved]
  - Ataxia [Recovering/Resolving]
